FAERS Safety Report 10315028 (Version 3)
Quarter: 2014Q3

REPORT INFORMATION
  Report Type: Spontaneous
  Country: VE (occurrence: VE)
  Receive Date: 20140718
  Receipt Date: 20140821
  Transmission Date: 20150326
  Serious: Yes (Hospitalization, Other)
  Sender: FDA-Public Use
  Company Number: PHHY2014VE088104

PATIENT
  Age: 82 Year
  Sex: Female

DRUGS (11)
  1. ASAPROL [Concomitant]
     Dosage: 1 DF DAILY
  2. GALVUS MET [Suspect]
     Active Substance: METFORMIN HYDROCHLORIDE\VILDAGLIPTIN
     Indication: TYPE 2 DIABETES MELLITUS
     Dosage: 1 DF, DAILY
     Route: 048
  3. ISMO [Concomitant]
     Active Substance: ISOSORBIDE MONONITRATE
     Indication: HYPERTENSION
     Dosage: 20 MG DAILY
     Route: 048
  4. DIOVAN [Suspect]
     Active Substance: VALSARTAN
     Dosage: 160 MG, DAILY
     Route: 048
     Dates: start: 201407
  5. DIOVAN [Suspect]
     Active Substance: VALSARTAN
     Indication: HYPERTENSION
     Dosage: 80 MG, DAILY
     Route: 048
     Dates: start: 2010, end: 2012
  6. CILOSTAL [Concomitant]
     Active Substance: CILOSTAZOL
     Dosage: 50 MG DAILY
     Route: 048
  7. DIOVENOR [Concomitant]
     Indication: CARDIOVASCULAR DISORDER
     Dosage: DAILY
     Route: 048
  8. DIOVAN [Suspect]
     Active Substance: VALSARTAN
     Dosage: 160 MG, DAILY
     Route: 048
     Dates: start: 2012, end: 20140712
  9. PLAVIX [Concomitant]
     Active Substance: CLOPIDOGREL BISULFATE
     Dosage: 75 MG,DAILY
     Route: 048
  10. LIPITOR [Concomitant]
     Active Substance: ATORVASTATIN CALCIUM
     Indication: LIPIDS ABNORMAL
     Dosage: 40 MG DAILY
     Route: 048
  11. DIOVAN [Suspect]
     Active Substance: VALSARTAN
     Dosage: 320 MG, DAILY
     Route: 048
     Dates: start: 201402, end: 201407

REACTIONS (4)
  - Hypotension [Recovered/Resolved]
  - Hypertension [Recovered/Resolved]
  - Drug ineffective [Recovered/Resolved]
  - Myocardial infarction [Recovered/Resolved]

NARRATIVE: CASE EVENT DATE: 201208
